FAERS Safety Report 11088189 (Version 2)
Quarter: 2015Q3

REPORT INFORMATION
  Report Type: Spontaneous
  Country: US (occurrence: US)
  Receive Date: 20150504
  Receipt Date: 20150723
  Transmission Date: 20151125
  Serious: Yes (Other)
  Sender: FDA-Public Use
  Company Number: US-009507513-1504USA014811

PATIENT
  Age: 42 Year
  Sex: Female
  Weight: 85.26 kg

DRUGS (1)
  1. NEXPLANON [Suspect]
     Active Substance: ETONOGESTREL
     Indication: DYSFUNCTIONAL UTERINE BLEEDING
     Dosage: UNK
     Route: 059
     Dates: start: 20150409, end: 20150416

REACTIONS (4)
  - Implant site pruritus [Recovered/Resolved]
  - Paraesthesia [Recovered/Resolved]
  - Drug administration error [Recovered/Resolved]
  - Discomfort [Recovered/Resolved]

NARRATIVE: CASE EVENT DATE: 20150409
